FAERS Safety Report 19875942 (Version 2)
Quarter: 2021Q4

REPORT INFORMATION
  Report Type: Report from Study
  Country: CA (occurrence: CA)
  Receive Date: 20210923
  Receipt Date: 20211004
  Transmission Date: 20220304
  Serious: Yes (Other)
  Sender: FDA-Public Use
  Company Number: NVSC2021CA212523

PATIENT
  Sex: Female

DRUGS (1)
  1. TRAMETINIB [Suspect]
     Active Substance: TRAMETINIB
     Indication: Glioma
     Dosage: UNK
     Route: 065
     Dates: end: 20210805

REACTIONS (4)
  - Pancytopenia [Unknown]
  - Malignant neoplasm progression [Unknown]
  - Glioma [Unknown]
  - Hepatic enzyme increased [Unknown]
